FAERS Safety Report 10747067 (Version 2)
Quarter: 2015Q1

REPORT INFORMATION
  Report Type: Spontaneous
  Country: US (occurrence: US)
  Receive Date: 20150129
  Receipt Date: 20150302
  Transmission Date: 20150721
  Serious: No
  Sender: FDA-Public Use
  Company Number: US-AMGEN-USASP2015006424

PATIENT
  Age: 57 Year
  Sex: Female
  Weight: 73.16 kg

DRUGS (3)
  1. CLOBETASOL 0.05% [Concomitant]
     Active Substance: CLOBETASOL
     Indication: RASH
     Dosage: UNK UNK, BID
     Route: 061
  2. PROZAC [Concomitant]
     Active Substance: FLUOXETINE HYDROCHLORIDE
     Dosage: 20 UNK, QD
     Route: 048
  3. ENBREL [Suspect]
     Active Substance: ETANERCEPT
     Indication: PSORIASIS
     Dosage: UNK UNK, 2 TIMES/WK
     Route: 058
     Dates: start: 20150106

REACTIONS (5)
  - Skin plaque [Recovering/Resolving]
  - Injection site erythema [Not Recovered/Not Resolved]
  - Injection site reaction [Not Recovered/Not Resolved]
  - Injection site swelling [Not Recovered/Not Resolved]
  - Injection site recall reaction [Not Recovered/Not Resolved]

NARRATIVE: CASE EVENT DATE: 20150118
